FAERS Safety Report 7590795-0 (Version None)
Quarter: 2011Q3

REPORT INFORMATION
  Report Type: 
  Country: None (occurrence: None)
  Receive Date: 20110705
  Receipt Date: 20110628
  Transmission Date: 20111222
  Serious: Yes (Hospitalization)
  Sender: FDA-Public Use
  Company Number: FR-PFIZER INC-2011129478

PATIENT
  Age: 72 Year
  Sex: Male

DRUGS (1)
  1. TORISEL [Suspect]
     Indication: MANTLE CELL LYMPHOMA
     Dosage: 25 MG/ML, CYCLIC
     Route: 042
     Dates: start: 20100929, end: 20110222

REACTIONS (1)
  - LUNG DISORDER [None]
